FAERS Safety Report 9546908 (Version 1)
Quarter: 2013Q2

REPORT INFORMATION
  Report Type: Spontaneous
  Country: US (occurrence: None)
  Receive Date: 20130524
  Receipt Date: 20130524
  Transmission Date: 20140414
  Serious: Yes (Other)
  Sender: FDA-Public Use
  Company Number: PHEH2012US024542

PATIENT
  Age: 28 Year
  Sex: Female

DRUGS (5)
  1. GILENYA [Suspect]
     Indication: RELAPSING-REMITTING MULTIPLE SCLEROSIS
     Route: 048
     Dates: start: 201210
  2. AVONEX [Suspect]
     Indication: MULTIPLE SCLEROSIS
  3. BETASERON [Suspect]
     Indication: MULTIPLE SCLEROSIS
  4. COPAXONE [Suspect]
     Indication: MULTIPLE SCLEROSIS
  5. REBIF [Suspect]
     Indication: MULTIPLE SCLEROSIS

REACTIONS (3)
  - Abdominal discomfort [None]
  - Diarrhoea [None]
  - Multiple sclerosis relapse [None]
